FAERS Safety Report 8879046 (Version 1)
Quarter: 2012Q4

REPORT INFORMATION
  Report Type: Spontaneous
  Country: US (occurrence: None)
  Receive Date: 20121031
  Receipt Date: 20121031
  Transmission Date: 20130627
  Serious: Yes (Other)
  Sender: FDA-Public Use
  Company Number: None

PATIENT
  Age: 52 Year
  Sex: Male
  Weight: 92.99 kg

DRUGS (1)
  1. DEPO-TESTOSTERONE [Suspect]
     Indication: HYPOGONADISM
     Dosage: 0.75 ml  Weekly IM
     Route: 030
     Dates: start: 20120901, end: 20121007

REACTIONS (4)
  - Drug ineffective [None]
  - Product contamination physical [None]
  - Product quality issue [None]
  - Product counterfeit [None]
